FAERS Safety Report 6637478-9 (Version None)
Quarter: 2010Q1

REPORT INFORMATION
  Report Type: 
  Country: None (occurrence: None)
  Receive Date: 20100316
  Receipt Date: 20100308
  Transmission Date: 20100710
  Serious: Yes (Death, Other)
  Sender: FDA-Public Use
  Company Number: IT-BRISTOL-MYERS SQUIBB COMPANY-15016223

PATIENT
  Age: 75 Year
  Sex: Female

DRUGS (5)
  1. CARBIDOPA + LEVODOPA [Suspect]
     Indication: PARKINSON'S DISEASE
     Dosage: 1DF  = 100/25MG
     Route: 048
     Dates: start: 20100214, end: 20100218
  2. BROMAZEPAM [Concomitant]
  3. DEPAKIN [Concomitant]
  4. ALPRAZOLAM [Concomitant]
  5. REMERON [Concomitant]

REACTIONS (2)
  - CARDIAC ARREST [None]
  - PSYCHOMOTOR HYPERACTIVITY [None]
